FAERS Safety Report 9325858 (Version 2)
Quarter: 2013Q2

REPORT INFORMATION
  Report Type: Spontaneous
  Country: US (occurrence: US)
  Receive Date: 20130604
  Receipt Date: 20130613
  Transmission Date: 20140414
  Serious: Yes (Hospitalization, Other)
  Sender: FDA-Public Use
  Company Number: US-PFIZER INC-2013168738

PATIENT
  Age: 64 Year
  Sex: Female

DRUGS (2)
  1. LYRICA [Suspect]
     Indication: FIBROMYALGIA
     Dosage: 75 MG, 2X/DAY
  2. CALCIUM [Concomitant]
     Indication: OSTEOPOROSIS
     Dosage: 600 MG DAILY

REACTIONS (1)
  - Pneumonia [Recovered/Resolved]
